FAERS Safety Report 26071514 (Version 1)
Quarter: 2025Q4

REPORT INFORMATION
  Report Type: Spontaneous
  Country: JP (occurrence: JP)
  Receive Date: 20251120
  Receipt Date: 20251120
  Transmission Date: 20260117
  Serious: Yes (Hospitalization)
  Sender: BOEHRINGER INGELHEIM
  Company Number: JP-NBI-2025-BI-084955

PATIENT
  Age: 76 Year
  Sex: Male

DRUGS (1)
  1. OFEV [Suspect]
     Active Substance: NINTEDANIB
     Indication: Idiopathic pulmonary fibrosis

REACTIONS (12)
  - Oxygen saturation decreased [Not Recovered/Not Resolved]
  - Constipation [Not Recovered/Not Resolved]
  - General physical health deterioration [Not Recovered/Not Resolved]
  - Anal fissure [Not Recovered/Not Resolved]
  - Diarrhoea [Not Recovered/Not Resolved]
  - Anal fistula [Not Recovered/Not Resolved]
  - Abdominal discomfort [Not Recovered/Not Resolved]
  - Asthenia [Not Recovered/Not Resolved]
  - Tooth fracture [Not Recovered/Not Resolved]
  - Toothache [Recovered/Resolved]
  - Diarrhoea [Recovered/Resolved]
  - Decreased appetite [Not Recovered/Not Resolved]

NARRATIVE: CASE EVENT DATE: 20250901
